FAERS Safety Report 7529453-7 (Version None)
Quarter: 2011Q2

REPORT INFORMATION
  Report Type: 
  Country: None (occurrence: None)
  Receive Date: 20110531
  Receipt Date: 20110517
  Transmission Date: 20111010
  Serious: Yes (Hospitalization)
  Sender: FDA-Public Use
  Company Number: 2011MA006017

PATIENT
  Age: 70 Year
  Sex: Female
  Weight: 113.3993 kg

DRUGS (3)
  1. THIOTHIXENE [Concomitant]
  2. GABAPENTIN [Concomitant]
  3. RISPERIDONE [Suspect]
     Indication: SCHIZOPHRENIA, PARANOID TYPE
     Dosage: 0.5 MG;BID

REACTIONS (2)
  - HYPERTRIGLYCERIDAEMIA [None]
  - CONDITION AGGRAVATED [None]
